FAERS Safety Report 18716715 (Version 1)
Quarter: 2021Q1

REPORT INFORMATION
  Report Type: Spontaneous
  Country: US (occurrence: US)
  Receive Date: 20210107
  Receipt Date: 20210107
  Transmission Date: 20210419
  Serious: Yes (Death)
  Sender: FDA-Public Use
  Company Number: None

PATIENT
  Age: 67 Year
  Sex: Female

DRUGS (26)
  1. AMBIEN [Suspect]
     Active Substance: ZOLPIDEM TARTRATE
  2. DOXYCYCL HYC [Concomitant]
  3. HYDROCHLOROT [Concomitant]
     Active Substance: HYDROCHLOROTHIAZIDE
  4. ODIUM CHLOR NEB 3% [Concomitant]
  5. TAGRISSO [Concomitant]
     Active Substance: OSIMERTINIB
  6. MEKINIST [Suspect]
     Active Substance: TRAMETINIB DIMETHYL SULFOXIDE
     Indication: LUNG NEOPLASM MALIGNANT
     Route: 048
     Dates: end: 20210105
  7. ASPIRIN EC [Concomitant]
     Active Substance: ASPIRIN
  8. AZO URINARY [Concomitant]
  9. ONDANSETRON [Concomitant]
     Active Substance: ONDANSETRON
  10. ISOSORB MONO [Concomitant]
     Active Substance: ISOSORBIDE MONONITRATE
  11. TESSALON PER [Concomitant]
  12. VENTOLIN HFA [Concomitant]
     Active Substance: ALBUTEROL SULFATE
  13. CODEINE/GG [Concomitant]
  14. A?HYDROCORT [Concomitant]
     Active Substance: HYDROCORTISONE SODIUM SUCCINATE
  15. DEXAMETHASON [Concomitant]
     Active Substance: DEXAMETHASONE
  16. MORPHINE SUL [Concomitant]
     Active Substance: MORPHINE SULFATE
  17. NIACIN. [Concomitant]
     Active Substance: NIACIN
  18. PREDNISONE. [Concomitant]
     Active Substance: PREDNISONE
  19. VITAMIN D3 [Concomitant]
     Active Substance: CHOLECALCIFEROL
  20. TAFINLAR [Suspect]
     Active Substance: DABRAFENIB MESYLATE
     Indication: LUNG NEOPLASM MALIGNANT
     Route: 048
     Dates: end: 20210105
  21. FOLIC ACID. [Concomitant]
     Active Substance: FOLIC ACID
  22. METOPROL SUC ER [Concomitant]
     Active Substance: METOPROLOL SUCCINATE
  23. NARCAN [Concomitant]
     Active Substance: NALOXONE HYDROCHLORIDE
  24. POTASSIUM CHLORIDE. [Concomitant]
     Active Substance: POTASSIUM CHLORIDE
  25. SERTRALINE [Concomitant]
     Active Substance: SERTRALINE HYDROCHLORIDE
  26. PROMETHAZINE [Concomitant]
     Active Substance: PROMETHAZINE HYDROCHLORIDE

REACTIONS (1)
  - Death [None]

NARRATIVE: CASE EVENT DATE: 20210105
